FAERS Safety Report 21011949 (Version 1)
Quarter: 2022Q2

REPORT INFORMATION
  Report Type: Report from Study
  Country: IT (occurrence: IT)
  Receive Date: 20220627
  Receipt Date: 20220627
  Transmission Date: 20220721
  Serious: Yes (Death, Other)
  Sender: FDA-Public Use
  Company Number: IT-BRISTOL-MYERS SQUIBB COMPANY-2022-061180

PATIENT
  Age: 82 Year
  Sex: Female

DRUGS (5)
  1. REVLIMID [Suspect]
     Active Substance: LENALIDOMIDE
     Indication: Plasma cell myeloma
     Dosage: QAM
     Route: 048
     Dates: start: 20180926, end: 20181017
  2. REVLIMID [Suspect]
     Active Substance: LENALIDOMIDE
     Dosage: QAM
     Route: 048
     Dates: start: 20181024, end: 20181113
  3. REVLIMID [Suspect]
     Active Substance: LENALIDOMIDE
     Dosage: QAM
     Route: 048
     Dates: start: 20181121, end: 20181211
  4. REVLIMID [Suspect]
     Active Substance: LENALIDOMIDE
     Dosage: QAM
     Route: 048
     Dates: start: 20181227, end: 20190116
  5. DEXAMETHASONE [Suspect]
     Active Substance: DEXAMETHASONE
     Indication: Plasma cell myeloma
     Route: 048
     Dates: start: 20180926, end: 20190123

REACTIONS (3)
  - Anaemia [Not Recovered/Not Resolved]
  - Second primary malignancy [Unknown]
  - Death [Fatal]

NARRATIVE: CASE EVENT DATE: 20220505
